FAERS Safety Report 9154086 (Version 1)
Quarter: 2013Q1

REPORT INFORMATION
  Report Type: Spontaneous
  Country: US (occurrence: None)
  Receive Date: 20130306
  Receipt Date: 20130306
  Transmission Date: 20140127
  Serious: No
  Sender: FDA-Public Use
  Company Number: None

PATIENT
  Sex: Male
  Weight: 79.38 kg

DRUGS (1)
  1. ACIPHEX 10MG. MANUF. UNK. [Suspect]
     Route: 048
     Dates: start: 201012, end: 201212

REACTIONS (2)
  - Muscle spasms [None]
  - Sleep disorder [None]
